FAERS Safety Report 7402332-1 (Version None)
Quarter: 2011Q2

REPORT INFORMATION
  Report Type: 
  Country: None (occurrence: None)
  Receive Date: 20110408
  Receipt Date: 20110314
  Transmission Date: 20111010
  Serious: No
  Sender: FDA-Public Use
  Company Number: US-B.I. PHARMACEUTICALS,INC./RIDGEFIELD-2011-BP-08361BP

PATIENT
  Sex: Female

DRUGS (3)
  1. NEXIUM [Concomitant]
     Indication: GASTROOESOPHAGEAL REFLUX DISEASE
     Route: 048
  2. ZANTAC 150 [Suspect]
     Indication: DYSPEPSIA
     Dosage: 150-300MG QD
     Route: 048
     Dates: start: 20101201
  3. DULCOLAX [Suspect]
     Indication: CONSTIPATION
     Route: 048

REACTIONS (2)
  - DRUG INEFFECTIVE [None]
  - CONSTIPATION [None]
